FAERS Safety Report 24948966 (Version 1)
Quarter: 2025Q1

REPORT INFORMATION
  Report Type: Spontaneous
  Country: US (occurrence: None)
  Receive Date: 20250208
  Receipt Date: 20250208
  Transmission Date: 20250409
  Serious: Yes (Other)
  Sender: FDA-CTU
  Company Number: None

PATIENT
  Age: 55 Year
  Sex: Female
  Weight: 63 kg

DRUGS (25)
  1. PAXLOVID [Suspect]
     Active Substance: NIRMATRELVIR\RITONAVIR
     Indication: COVID-19
     Dosage: 3 CAPSULES EVERY 12 HOURS ORAL
     Route: 048
     Dates: start: 20250127, end: 20250130
  2. AMBIEN [Concomitant]
     Active Substance: ZOLPIDEM TARTRATE
  3. AMITIZA [Concomitant]
     Active Substance: LUBIPROSTONE
  4. ARMODAFINIL [Concomitant]
     Active Substance: ARMODAFINIL
  5. ASTELIN [Concomitant]
     Active Substance: AZELASTINE HYDROCHLORIDE
  6. dulera asthma [Concomitant]
  7. ESTROGENS [Concomitant]
     Active Substance: ESTROGENS
  8. levathyrocine [Concomitant]
  9. PYRIDOSTIGMINE [Concomitant]
     Active Substance: PYRIDOSTIGMINE
  10. REFRESH SOLUTION NOS [Concomitant]
     Active Substance: CARBOXYMETHYLCELLULOSE SODIUM\GLYCERIN
  11. retin-a acne [Concomitant]
  12. RHOFADE [Concomitant]
     Active Substance: OXYMETAZOLINE HYDROCHLORIDE
  13. singulair asthma [Concomitant]
  14. thyroid-pork [Concomitant]
  15. topamax welbutrin xl [Concomitant]
  16. xopenex asthma [Concomitant]
  17. CLARITIN [Concomitant]
     Active Substance: LORATADINE
  18. refresh eyes drops [Concomitant]
  19. FLONASE [Concomitant]
     Active Substance: FLUTICASONE PROPIONATE
  20. SALONPAS PAIN RELIEF [Concomitant]
     Active Substance: MENTHOL\METHYL SALICYLATE
  21. plain menthol [Concomitant]
  22. VITAMINS [Concomitant]
     Active Substance: VITAMINS
  23. flax seed meal [Concomitant]
  24. chia [Concomitant]
  25. QUINOA [Concomitant]

REACTIONS (9)
  - Feeling jittery [None]
  - Anxiety [None]
  - Insomnia [None]
  - Executive dysfunction [None]
  - Tremor [None]
  - Muscle twitching [None]
  - Miosis [None]
  - Heart rate decreased [None]
  - Sciatica [None]

NARRATIVE: CASE EVENT DATE: 20250129
